FAERS Safety Report 10589598 (Version 1)
Quarter: 2014Q4

REPORT INFORMATION
  Report Type: Spontaneous
  Country: US (occurrence: US)
  Receive Date: 20141118
  Receipt Date: 20141118
  Transmission Date: 20150529
  Serious: Yes (Other)
  Sender: FDA-Public Use
  Company Number: US-CIPLA LTD.-2014US01931

PATIENT

DRUGS (3)
  1. PELVIC RADIOTHERAPY [Suspect]
     Active Substance: RADIATION THERAPY
     Indication: OVARIAN EPITHELIAL CANCER
     Dosage: 45 GY IN 25 FRACTIONS
  2. CARBOPLATIN. [Suspect]
     Active Substance: CARBOPLATIN
     Indication: OVARIAN EPITHELIAL CANCER
     Route: 042
  3. PACLITAXEL. [Suspect]
     Active Substance: PACLITAXEL
     Indication: OVARIAN EPITHELIAL CANCER
     Route: 042

REACTIONS (4)
  - Disease recurrence [Unknown]
  - Gastrointestinal disorder [None]
  - Metastases to pelvis [None]
  - Neoplasm recurrence [None]
